FAERS Safety Report 10361171 (Version 1)
Quarter: 2014Q3

REPORT INFORMATION
  Report Type: Spontaneous
  Country: AU (occurrence: None)
  Receive Date: 20140731
  Receipt Date: 20140731
  Transmission Date: 20150326
  Serious: Yes (Other)
  Sender: FDA-Public Use
  Company Number: 2014-20062

PATIENT
  Sex: Male

DRUGS (1)
  1. EYLEA [Suspect]
     Active Substance: AFLIBERCEPT
     Indication: RETINAL VEIN OCCLUSION
     Dosage: THE PATIENT WAS RECEIVING COMPASSIONATE EYLEA ON LEFT EYE

REACTIONS (3)
  - Visual acuity reduced [None]
  - Maculopathy [None]
  - Macular oedema [None]
